FAERS Safety Report 8206558-9 (Version None)
Quarter: 2012Q1

REPORT INFORMATION
  Report Type: 
  Country: None (occurrence: None)
  Receive Date: 20120313
  Receipt Date: 20120308
  Transmission Date: 20120608
  Serious: Yes (Hospitalization)
  Sender: FDA-Public Use
  Company Number: US-MERCK-1203USA01349

PATIENT
  Sex: Male

DRUGS (2)
  1. ALENDRONATE SODIUM [Suspect]
     Route: 048
     Dates: start: 20080221, end: 20080601
  2. FOSAMAX [Suspect]
     Route: 048
     Dates: start: 20020101, end: 20080221

REACTIONS (1)
  - FEMUR FRACTURE [None]
